FAERS Safety Report 8299953 (Version 2)
Quarter: 2014Q4

REPORT INFORMATION
  Report Type: Spontaneous
  Country: US (occurrence: US)
  Receive Date: 20111219
  Receipt Date: 20141217
  Transmission Date: 20150529
  Serious: Yes (Other)
  Sender: FDA-Public Use
  Company Number: US-ASTRAZENECA-2011SE59802

PATIENT
  Age: 73 Year
  Sex: Female
  Weight: 74.8 kg

DRUGS (6)
  1. CRESTOR [Suspect]
     Active Substance: ROSUVASTATIN CALCIUM
     Indication: BLOOD CHOLESTEROL INCREASED
     Route: 048
     Dates: start: 20120409, end: 201412
  2. ETODOLAC. [Concomitant]
     Active Substance: ETODOLAC
     Indication: FIBROMYALGIA
  3. CRESTOR [Suspect]
     Active Substance: ROSUVASTATIN CALCIUM
     Indication: BLOOD CHOLESTEROL INCREASED
     Route: 048
  4. FLUOXETINE [Concomitant]
     Active Substance: FLUOXETINE\FLUOXETINE HYDROCHLORIDE
     Dates: start: 20091227
  5. LISINOPRIL. [Suspect]
     Active Substance: LISINOPRIL
     Route: 048
     Dates: start: 20091227
  6. LEVOTHYROXIDE [Concomitant]
     Indication: THYROID DISORDER
     Dates: start: 2014

REACTIONS (4)
  - Drug dose omission [Not Recovered/Not Resolved]
  - Colon cancer [Recovered/Resolved]
  - Blood cholesterol increased [Unknown]
  - Multiple allergies [Unknown]

NARRATIVE: CASE EVENT DATE: 2010
